FAERS Safety Report 8251053-4 (Version None)
Quarter: 2012Q1

REPORT INFORMATION
  Report Type: 
  Country: None (occurrence: None)
  Receive Date: 20120328
  Receipt Date: 20120321
  Transmission Date: 20120608
  Serious: Yes (Hospitalization, Other)
  Sender: FDA-Public Use
  Company Number: 2010SP006056

PATIENT
  Age: 32 Year
  Sex: Female
  Weight: 94.8018 kg

DRUGS (2)
  1. NUVARING [Suspect]
     Indication: CONTRACEPTION
     Dates: start: 20090201, end: 20091001
  2. CELEXA [Concomitant]

REACTIONS (9)
  - PULMONARY EMBOLISM [None]
  - DERMOID CYST [None]
  - OVARIAN CYST [None]
  - INTERNATIONAL NORMALISED RATIO INCREASED [None]
  - SINUSITIS [None]
  - PLEURAL EFFUSION [None]
  - UPPER RESPIRATORY TRACT INFECTION [None]
  - SINUS TACHYCARDIA [None]
  - ATELECTASIS [None]
